FAERS Safety Report 15411477 (Version 1)
Quarter: 2018Q3

REPORT INFORMATION
  Report Type: Spontaneous
  Country: US (occurrence: US)
  Receive Date: 20180921
  Receipt Date: 20180921
  Transmission Date: 20181010
  Serious: No
  Sender: FDA-Public Use
  Company Number: US-RECKITT BENCKISER HEALTHCARE INT LIMITED-RB-84566-2018

PATIENT
  Age: 76 Year
  Sex: Male
  Weight: 96.16 kg

DRUGS (1)
  1. MUCINEX MAXIMUM STRENGTH [Suspect]
     Active Substance: GUAIFENESIN
     Indication: PRODUCT USED FOR UNKNOWN INDICATION
     Dosage: 1200 MG, IN EVERY 4 HOURS (A TOTAL OF 4 DOSE THAT IS 4800 MG)
     Route: 048
     Dates: start: 20180224

REACTIONS (4)
  - Dyspnoea [Unknown]
  - Accidental exposure to product [Unknown]
  - Chronic obstructive pulmonary disease [Unknown]
  - Incorrect drug administration duration [Unknown]

NARRATIVE: CASE EVENT DATE: 20180224
